FAERS Safety Report 5153401-0 (Version None)
Quarter: 2006Q4

REPORT INFORMATION
  Report Type: 
  Country: None (occurrence: None)
  Receive Date: 20061113
  Receipt Date: 20061030
  Transmission Date: 20070319
  Serious: Yes (Death, Life-Threatening)
  Sender: FDA-Public Use
  Company Number: 2006-148688-NL

PATIENT
  Age: 57 Year
  Sex: Male

DRUGS (8)
  1. DANAPAROID SODIUM [Suspect]
     Indication: DISSEMINATED INTRAVASCULAR COAGULATION
     Dosage: 2500 ANTI_XA; INTRAVENOUS NOS
     Route: 042
     Dates: start: 20040407, end: 20040410
  2. GABEXATE MESILATE [Concomitant]
  3. NAFAMOSTAT MESILATE [Concomitant]
  4. DOPAMINE HCL [Concomitant]
  5. OMEPRAZOLE [Concomitant]
  6. CEFOZOPRAN HYDROCHLORIDE [Concomitant]
  7. ANTITHROMBIN III [Concomitant]
  8. ULINASTATIN [Concomitant]

REACTIONS (7)
  - CONDITION AGGRAVATED [None]
  - HAEMOGLOBIN DECREASED [None]
  - HAEMORRHAGE [None]
  - HEPATIC FUNCTION ABNORMAL [None]
  - MULTI-ORGAN FAILURE [None]
  - NEOPLASM MALIGNANT [None]
  - RENAL IMPAIRMENT [None]
